FAERS Safety Report 24066219 (Version 1)
Quarter: 2024Q3

REPORT INFORMATION
  Report Type: Spontaneous
  Country: FR (occurrence: None)
  Receive Date: 20240709
  Receipt Date: 20240709
  Transmission Date: 20241016
  Serious: Yes (Death, Hospitalization, Other)
  Sender: ASTRAZENECA
  Company Number: 2024A156127

PATIENT
  Age: 79 Year
  Sex: Female

DRUGS (1)
  1. DURVALUMAB [Suspect]
     Active Substance: DURVALUMAB
     Indication: Non-small cell lung cancer
     Dosage: 10 MG/KG Q2W
     Dates: start: 20210621, end: 20211217

REACTIONS (11)
  - Acute pulmonary oedema [Fatal]
  - Metastases to skin [Unknown]
  - Lymphadenopathy [Unknown]
  - Malignant neoplasm progression [Unknown]
  - Haematotoxicity [Unknown]
  - Asthenia [Unknown]
  - Dysphagia [Unknown]
  - Hypothyroidism [Unknown]
  - Decreased appetite [Unknown]
  - Alopecia [Unknown]
  - Off label use [Unknown]
